FAERS Safety Report 4628206-7 (Version None)
Quarter: 2005Q2

REPORT INFORMATION
  Report Type: 
  Country: None (occurrence: None)
  Receive Date: 20050406
  Receipt Date: 20050328
  Transmission Date: 20051028
  Serious: Yes (Other)
  Sender: FDA-Public Use
  Company Number: JP-SANOFI-SYNTHELABO-A01200501908

PATIENT
  Age: 86 Year
  Sex: Female

DRUGS (2)
  1. MYSLEE [Suspect]
     Indication: INSOMNIA
     Route: 048
     Dates: start: 20050323, end: 20050323
  2. BROACT [Concomitant]
     Indication: DRUG USE FOR UNKNOWN INDICATION
     Dosage: UNK
     Route: 048

REACTIONS (1)
  - COMA [None]
